FAERS Safety Report 14371061 (Version 4)
Quarter: 2018Q1

REPORT INFORMATION
  Report Type: Report from Study
  Country: FR (occurrence: FR)
  Receive Date: 20180110
  Receipt Date: 20180125
  Transmission Date: 20180509
  Serious: Yes (Other)
  Sender: FDA-Public Use
  Company Number: FR-CONCORDIA PHARMACEUTICALS INC.-GSH201801-000101

PATIENT
  Sex: Female

DRUGS (2)
  1. SOTALOL. [Suspect]
     Active Substance: SOTALOL
     Indication: TACHYCARDIA FOETAL
  2. DIGOXIN. [Suspect]
     Active Substance: DIGOXIN
     Indication: TACHYCARDIA FOETAL

REACTIONS (6)
  - Overdose [Unknown]
  - Electrocardiogram PR prolongation [Unknown]
  - Exposure during pregnancy [Unknown]
  - Cardioactive drug level increased [Unknown]
  - Atrioventricular block first degree [Unknown]
  - Sinus bradycardia [Unknown]
